FAERS Safety Report 26180726 (Version 1)
Quarter: 2025Q4

REPORT INFORMATION
  Report Type: Spontaneous
  Country: US (occurrence: US)
  Receive Date: 20251219
  Receipt Date: 20251219
  Transmission Date: 20260117
  Serious: No
  Sender: Kenvue
  Company Number: US-KENVUE-20251111010

PATIENT
  Age: 45 Year
  Sex: Female

DRUGS (5)
  1. ZYRTEC [Suspect]
     Active Substance: CETIRIZINE HYDROCHLORIDE
     Indication: Rash
     Dosage: UNK
     Route: 065
  2. ZYRTEC [Suspect]
     Active Substance: CETIRIZINE HYDROCHLORIDE
     Indication: Blister
  3. ZYRTEC [Suspect]
     Active Substance: CETIRIZINE HYDROCHLORIDE
     Indication: Abdominal discomfort
  4. JOHNSONS BABY LOTION [Concomitant]
     Active Substance: COSMETICS
     Indication: Eczema
     Dosage: I JUST APPLY IT LIBERALLY, TWICE A DAY
     Route: 048
     Dates: start: 20251017, end: 202510
  5. JOHNSONS BABY LOTION [Concomitant]
     Active Substance: COSMETICS
     Indication: Dry skin prophylaxis

REACTIONS (2)
  - Product use in unapproved indication [Unknown]
  - Therapeutic response unexpected [Unknown]

NARRATIVE: CASE EVENT DATE: 20251001
